FAERS Safety Report 11059167 (Version 1)
Quarter: 2015Q2

REPORT INFORMATION
  Report Type: Report from Study
  Country: BR (occurrence: BR)
  Receive Date: 20150423
  Receipt Date: 20150423
  Transmission Date: 20150821
  Serious: Yes (Other)
  Sender: FDA-Public Use
  Company Number: PHHY2015BR006746

PATIENT
  Sex: Male
  Weight: 70 kg

DRUGS (6)
  1. GLIFAGE [Suspect]
     Active Substance: METFORMIN HYDROCHLORIDE
     Indication: DIABETES MELLITUS
     Dosage: 2 DF, QHS
     Route: 065
  2. GALVUS MET [Suspect]
     Active Substance: METFORMIN HYDROCHLORIDE\VILDAGLIPTIN
     Indication: DIABETES MELLITUS
     Dosage: 1 DF, QD 1 DF (TABLET), BID (IN THE MORNING AND AT NIGHT)
     Route: 065
  3. RECONTER [Suspect]
     Active Substance: ESCITALOPRAM OXALATE
     Indication: RELAXATION THERAPY
     Dosage: 1 DF, QD
     Route: 065
     Dates: start: 201406
  4. EXELON PATCH [Suspect]
     Active Substance: RIVASTIGMINE
     Indication: DEMENTIA ALZHEIMER^S TYPE
     Dosage: 18 MG/ 10 CM2 (9.5 MG), QD
     Route: 062
  5. ARADOIS [Concomitant]
     Active Substance: LOSARTAN POTASSIUM
     Indication: HYPERTENSION
     Dosage: 1 DF, BID (IN THE MORNING AND AT NIGHT)
     Route: 065
  6. RECONTER [Suspect]
     Active Substance: ESCITALOPRAM OXALATE
     Indication: DEMENTIA ALZHEIMER^S TYPE

REACTIONS (7)
  - Hydrocephalus [Unknown]
  - Decreased activity [Not Recovered/Not Resolved]
  - Pain in extremity [Not Recovered/Not Resolved]
  - Balance disorder [Not Recovered/Not Resolved]
  - Apathy [Not Recovered/Not Resolved]
  - Fall [Recovered/Resolved]
  - Incontinence [Not Recovered/Not Resolved]
